FAERS Safety Report 17188643 (Version 1)
Quarter: 2019Q4

REPORT INFORMATION
  Report Type: Other
  Country: US (occurrence: US)
  Receive Date: 20191222
  Receipt Date: 20191222
  Transmission Date: 20200122
  Serious: No
  Sender: FDA-Public Use
  Company Number: US-ACORDA-ACO_162869_2019

PATIENT

DRUGS (1)
  1. INBRIJA [Suspect]
     Active Substance: LEVODOPA
     Indication: ON AND OFF PHENOMENON
     Dosage: UNK
     Route: 065
     Dates: start: 2019

REACTIONS (5)
  - Cough [Unknown]
  - Sputum discoloured [Unknown]
  - Nasal mucosal discolouration [Unknown]
  - Discomfort [Unknown]
  - Drug ineffective [Unknown]
